FAERS Safety Report 8854860 (Version 1)
Quarter: 2012Q4

REPORT INFORMATION
  Report Type: 
  Country: US (occurrence: US)
  Receive Date: 20121023
  Receipt Date: 20121023
  Transmission Date: 20130627
  Serious: No
  Sender: FDA-Public Use
  Company Number: US-PFIZER INC-2012260037

PATIENT
  Age: 59 Year
  Sex: Female
  Weight: 126.98 kg

DRUGS (2)
  1. ARTHROTEC [Suspect]
     Indication: ARTHRITIS
     Dosage: UNK, 2x/day
     Route: 048
     Dates: start: 201110, end: 20121017
  2. LISINOPRIL [Concomitant]
     Indication: HYPERTENSION
     Dosage: 40 mg, UNK

REACTIONS (1)
  - Pain [Not Recovered/Not Resolved]
